FAERS Safety Report 6568318-4 (Version None)
Quarter: 2010Q1

REPORT INFORMATION
  Report Type: 
  Country: None (occurrence: None)
  Receive Date: 20100203
  Receipt Date: 20100201
  Transmission Date: 20100710
  Serious: Yes (Hospitalization, Other)
  Sender: FDA-Public Use
  Company Number: US-ELI_LILLY_AND_COMPANY-US201001001201

PATIENT
  Age: 79 Year
  Sex: Female

DRUGS (5)
  1. FORTEO [Suspect]
     Indication: OSTEOPOROSIS
     Dosage: 20 UG, DAILY (1/D)
     Dates: start: 20090811, end: 20090824
  2. FORTEO [Suspect]
     Dosage: 20 UG, UNKNOWN
  3. LIPITOR [Concomitant]
  4. VITAMIN D [Concomitant]
     Dosage: 5000 U, UNK
     Dates: end: 20090801
  5. CITRICAL [Concomitant]
     Dates: end: 20090801

REACTIONS (4)
  - BLOOD CALCIUM INCREASED [None]
  - MALAISE [None]
  - OFF LABEL USE [None]
  - WEIGHT DECREASED [None]
